FAERS Safety Report 14340031 (Version 3)
Quarter: 2018Q3

REPORT INFORMATION
  Report Type: Spontaneous
  Country: DE (occurrence: DE)
  Receive Date: 20171231
  Receipt Date: 20180810
  Transmission Date: 20181010
  Serious: Yes (Other)
  Sender: FDA-Public Use
  Company Number: DE-TEVA-2017-DE-838205

PATIENT
  Age: 80 Year
  Sex: Female

DRUGS (10)
  1. DIAMOX   /00016901/ [Concomitant]
     Active Substance: ACETAZOLAMIDE
     Indication: PRODUCT USED FOR UNKNOWN INDICATION
     Route: 065
  2. SIMVASTATIN. [Suspect]
     Active Substance: SIMVASTATIN
     Indication: PRODUCT USED FOR UNKNOWN INDICATION
     Route: 065
     Dates: end: 201504
  3. DIGIMERCK [Suspect]
     Active Substance: DIGITOXIN
     Indication: PRODUCT USED FOR UNKNOWN INDICATION
     Route: 065
     Dates: end: 20171012
  4. DIGIMERCK [Suspect]
     Active Substance: DIGITOXIN
     Dosage: DOSE REINTRODUCED
     Route: 065
  5. JANUVIA [Concomitant]
     Active Substance: SITAGLIPTIN PHOSPHATE
     Indication: PRODUCT USED FOR UNKNOWN INDICATION
     Route: 065
  6. FUROSEMIDE. [Concomitant]
     Active Substance: FUROSEMIDE
     Indication: PRODUCT USED FOR UNKNOWN INDICATION
     Route: 065
  7. ENAHEXAL  /00574902/ [Concomitant]
     Active Substance: ENALAPRIL MALEATE
     Indication: PRODUCT USED FOR UNKNOWN INDICATION
     Route: 065
  8. DIGIMERCK [Suspect]
     Active Substance: DIGITOXIN
     Route: 065
  9. LARIAM [Concomitant]
     Active Substance: MEFLOQUINE HYDROCHLORIDE
     Indication: PRODUCT USED FOR UNKNOWN INDICATION
     Route: 065
  10. INSULIN [Concomitant]
     Active Substance: INSULIN NOS
     Indication: PRODUCT USED FOR UNKNOWN INDICATION
     Route: 065

REACTIONS (11)
  - Depression [Unknown]
  - Retinal detachment [Unknown]
  - Malaise [Unknown]
  - Drug dose omission [Unknown]
  - Procedural haemorrhage [Unknown]
  - Decreased appetite [Recovering/Resolving]
  - Pain in extremity [Recovering/Resolving]
  - Oedema peripheral [Unknown]
  - Sleep disorder [Unknown]
  - Muscular weakness [Recovering/Resolving]
  - Muscle injury [Unknown]

NARRATIVE: CASE EVENT DATE: 2015
